FAERS Safety Report 25375445 (Version 1)
Quarter: 2025Q2

REPORT INFORMATION
  Report Type: Report from Study
  Country: CA (occurrence: CA)
  Receive Date: 20250529
  Receipt Date: 20250529
  Transmission Date: 20250716
  Serious: Yes (Other)
  Sender: ABBVIE
  Company Number: CA-ABBVIE-6301640

PATIENT
  Age: 76 Year
  Sex: Female
  Weight: 63.5 kg

DRUGS (1)
  1. RINVOQ [Suspect]
     Active Substance: UPADACITINIB
     Indication: Crohn^s disease
     Route: 048

REACTIONS (13)
  - Intestinal anastomosis [Unknown]
  - Henoch-Schonlein purpura [Recovered/Resolved]
  - Rash macular [Unknown]
  - Post procedural inflammation [Unknown]
  - Malaise [Unknown]
  - Abdominal pain [Unknown]
  - Social problem [Unknown]
  - Impaired work ability [Unknown]
  - Oral herpes [Recovered/Resolved]
  - Acrochordon [Unknown]
  - Faecal calprotectin decreased [Unknown]
  - Haemorrhoids [Unknown]
  - Diarrhoea [Recovering/Resolving]

NARRATIVE: CASE EVENT DATE: 20250101
